FAERS Safety Report 5474222-5 (Version None)
Quarter: 2007Q4

REPORT INFORMATION
  Report Type: 
  Country: None (occurrence: None)
  Receive Date: 20071002
  Receipt Date: 20070712
  Transmission Date: 20080405
  Serious: No
  Sender: FDA-Public Use
  Company Number: US-ASTRAZENECA-2007UW12687

PATIENT
  Sex: Female

DRUGS (8)
  1. ARIMIDEX [Suspect]
     Route: 048
     Dates: start: 20031101
  2. FOSAMAX [Concomitant]
     Dates: end: 20070501
  3. ASPIRIN [Concomitant]
  4. MAXZIDE [Concomitant]
  5. NIASPAN [Concomitant]
  6. COZAAR [Concomitant]
  7. MULTI-VITAMIN [Concomitant]
  8. CALCIUM WITH VITAMIN D [Concomitant]

REACTIONS (2)
  - DRUG INTERACTION [None]
  - ERUCTATION [None]
